FAERS Safety Report 4440286-0 (Version None)
Quarter: 2004Q3

REPORT INFORMATION
  Report Type: 
  Country: None (occurrence: None)
  Receive Date: 20040831
  Receipt Date: 20040825
  Transmission Date: 20050211
  Serious: Yes (Life-Threatening, Hospitalization)
  Sender: FDA-Public Use
  Company Number: STA-AE-04-MTX-383

PATIENT
  Age: 52 Year
  Sex: Male

DRUGS (18)
  1. RHEUMATREX [Suspect]
     Indication: RHEUMATOID ARTHRITIS
     Dosage: 4 MG 1X PER 1 WK, ORAL
     Route: 048
     Dates: start: 20021127, end: 20030808
  2. RHEUMATREX [Suspect]
     Indication: RHEUMATOID ARTHRITIS
     Dosage: 6 MG 1X PER 1 WK, ORAL
     Route: 048
     Dates: start: 20030809, end: 20030917
  3. RHEUMATREX [Suspect]
     Indication: RHEUMATOID ARTHRITIS
     Dosage: 2 MG 1X PER 1 WK, ORAL
     Route: 048
     Dates: start: 20030918, end: 20030930
  4. RHEUMATREX [Suspect]
     Indication: RHEUMATOID ARTHRITIS
     Dosage: 4MG 1X PER 1 WK, ORAL
     Route: 048
     Dates: start: 20031127
  5. DECADRON [Suspect]
     Indication: RHEUMATOID ARTHRITIS
     Dosage: 2 MG 1X PER 1 DAY, INTRAVENOUS
     Route: 042
     Dates: start: 19940101, end: 20030906
  6. HALOART-S (HALOPREDONE) [Suspect]
     Dosage: INJECTION
     Dates: start: 19940101
  7. LIMETHASONE (DEXAMETHASONE PALMITATE/GLYCEROL/LECITHIN/SOYA OIL) [Suspect]
     Indication: RHEUMATOID ARTHRITIS
     Dosage: 4 MG 1X PER 1 DAY, INTRAVENOUS
     Route: 042
     Dates: start: 19940101, end: 20030906
  8. PREDNISOLONE [Suspect]
     Dosage: 10 MG 1X PER 1 DAY, ORAL
     Route: 048
     Dates: start: 19940101, end: 20030918
  9. REMICADE [Suspect]
     Indication: RHEUMATOID ARTHRITIS
     Dosage: 3 MG/KG/DAY
     Dates: start: 20030910, end: 20030910
  10. THIOLA (TIOPRONIN) [Concomitant]
  11. VOLTAREN [Concomitant]
  12. SOLON (SOFALOCONE) [Concomitant]
  13. HALCION [Concomitant]
  14. FOLIC ACID [Concomitant]
  15. LOXONIN (LOXOPROFEN SODIUM) [Concomitant]
  16. FLURBIPROFEN [Concomitant]
  17. QUINAPRIL HCL [Concomitant]
  18. CONIEL (BENIDIPINE HYDROCHLORIDE) [Concomitant]

REACTIONS (8)
  - BACTERIAL INFECTION [None]
  - DISEASE PROGRESSION [None]
  - NEUROPATHY PERIPHERAL [None]
  - PLEURAL EFFUSION [None]
  - RHEUMATOID ARTHRITIS [None]
  - SCLERITIS [None]
  - SKIN ULCER [None]
  - TUBERCULIN TEST POSITIVE [None]
